FAERS Safety Report 6531218-X (Version None)
Quarter: 2010Q1

REPORT INFORMATION
  Report Type: 
  Country: None (occurrence: None)
  Receive Date: 20100108
  Receipt Date: 20100104
  Transmission Date: 20100710
  Serious: Yes (Hospitalization)
  Sender: FDA-Public Use
  Company Number: PHEH2009US17612

PATIENT
  Sex: Female

DRUGS (13)
  1. EXJADE [Suspect]
     Indication: HEREDITARY SPHEROCYTOSIS
     Dosage: 750 MG, DAILY
     Route: 048
     Dates: start: 20090908
  2. TRAZODONE HCL [Concomitant]
  3. SYNTHROID [Concomitant]
  4. PRISTIQ [Concomitant]
  5. FLONASE [Concomitant]
  6. SINGULAIR [Concomitant]
  7. MULTIVITAMIN ^LAPPE^ [Concomitant]
  8. FOLIC ACID [Concomitant]
  9. JANUMET [Concomitant]
  10. BONIVA [Concomitant]
  11. FLEXERIL [Concomitant]
  12. MIRALAX [Concomitant]
  13. ADVIL [Concomitant]

REACTIONS (8)
  - ABDOMINAL PAIN [None]
  - ANAEMIA [None]
  - BACK PAIN [None]
  - HAEMOGLOBIN DECREASED [None]
  - LEUKOCYTOSIS [None]
  - NAUSEA [None]
  - PLEURITIC PAIN [None]
  - VOMITING [None]
